FAERS Safety Report 15358815 (Version 3)
Quarter: 2019Q1

REPORT INFORMATION
  Report Type: Spontaneous
  Country: US (occurrence: US)
  Receive Date: 20180906
  Receipt Date: 20190222
  Transmission Date: 20190417
  Serious: No
  Sender: FDA-Public Use
  Company Number: US-ACTELION-A-NJ2018-178423

PATIENT
  Age: 53 Year
  Sex: Female
  Weight: 102.4 kg

DRUGS (3)
  1. OPSUMIT [Suspect]
     Active Substance: MACITENTAN
     Indication: PULMONARY ARTERIAL HYPERTENSION
     Dosage: 10 MG, QD
     Route: 048
  2. ADEMPAS [Concomitant]
     Active Substance: RIOCIGUAT
  3. REMODULIN [Concomitant]
     Active Substance: TREPROSTINIL

REACTIONS (9)
  - Catheter site discharge [Unknown]
  - Injection site erythema [Unknown]
  - Pain [Unknown]
  - Erythema [Unknown]
  - Pyrexia [Unknown]
  - Injection site haemorrhage [Unknown]
  - Catheter site infection [Unknown]
  - Injection site swelling [Unknown]
  - Catheter site pustule [Unknown]

NARRATIVE: CASE EVENT DATE: 20190128
